FAERS Safety Report 9144195 (Version 2)
Quarter: 2013Q1

REPORT INFORMATION
  Report Type: Spontaneous
  Country: FI (occurrence: FI)
  Receive Date: 20130306
  Receipt Date: 20130325
  Transmission Date: 20140127
  Serious: Yes (Hospitalization, Other)
  Sender: FDA-Public Use
  Company Number: FI-PFIZER INC-2013078635

PATIENT
  Age: 75 Year
  Sex: Female

DRUGS (3)
  1. LYRICA [Suspect]
     Dosage: 75 MG, UNK
  2. BISOPROLOL [Concomitant]
     Dosage: 5 MG, UNK
  3. PRAVASTATIN [Concomitant]
     Dosage: 20 MG, UNK

REACTIONS (6)
  - Arrhythmia [Recovered/Resolved]
  - Lacunar infarction [Recovered/Resolved]
  - Blood pressure increased [Recovered/Resolved]
  - Tinnitus [Recovered/Resolved]
  - Weight increased [Recovered/Resolved]
  - Memory impairment [Recovered/Resolved]
